FAERS Safety Report 17636142 (Version 1)
Quarter: 2020Q2

REPORT INFORMATION
  Report Type: Spontaneous
  Country: CA (occurrence: CA)
  Receive Date: 20200407
  Receipt Date: 20200407
  Transmission Date: 20200713
  Serious: Yes (Hospitalization)
  Sender: FDA-Public Use
  Company Number: CA-009507513-2004CAN001312

PATIENT
  Age: 56 Year
  Sex: Female

DRUGS (20)
  1. EMEND [Suspect]
     Active Substance: APREPITANT
     Indication: NAUSEA
  2. PANTOPRAZOLE [Suspect]
     Active Substance: PANTOPRAZOLE
     Indication: NAUSEA
  3. PANTOPRAZOLE [Suspect]
     Active Substance: PANTOPRAZOLE
     Indication: VOMITING
     Dosage: DOSAGE FORM NOT SPECIFIED
     Route: 065
  4. PROCHLORPERAZINE. [Suspect]
     Active Substance: PROCHLORPERAZINE
     Indication: VOMITING
     Dosage: DOSAGE FORM NOT SPECIFIED
     Route: 065
  5. PRUCALOPRIDE [Suspect]
     Active Substance: PRUCALOPRIDE
     Indication: VOMITING
     Dosage: UNK
     Route: 065
  6. DIMENHYDRINATE. [Suspect]
     Active Substance: DIMENHYDRINATE
     Indication: VOMITING
     Dosage: DOSAGE FORM NOT SPECIFIED
     Route: 065
  7. OLANZAPINE. [Suspect]
     Active Substance: OLANZAPINE
     Indication: NAUSEA
  8. PRUCALOPRIDE [Suspect]
     Active Substance: PRUCALOPRIDE
     Indication: NAUSEA
  9. METOCLOPRAMIDE. [Suspect]
     Active Substance: METOCLOPRAMIDE
     Indication: VOMITING
     Dosage: UNK
     Route: 065
  10. OLANZAPINE. [Suspect]
     Active Substance: OLANZAPINE
     Indication: VOMITING
     Dosage: DOSAGE FORM NOT SPECIFIED
     Route: 065
  11. DOMPERIDONE [Suspect]
     Active Substance: DOMPERIDONE
     Indication: VOMITING
     Dosage: UNK
     Route: 065
  12. DOMPERIDONE [Suspect]
     Active Substance: DOMPERIDONE
     Indication: NAUSEA
  13. NABILONE [Suspect]
     Active Substance: NABILONE
     Indication: VOMITING
     Dosage: DOSAGE FORM NOT SPECIFIED, 0.5 MILLIGRAM
     Route: 065
  14. ONDANSETRON [Suspect]
     Active Substance: ONDANSETRON
     Indication: VOMITING
     Dosage: DOSAGE FORM NOT SPECIFIED
     Route: 065
  15. METOCLOPRAMIDE. [Suspect]
     Active Substance: METOCLOPRAMIDE
     Indication: NAUSEA
  16. ONDANSETRON [Suspect]
     Active Substance: ONDANSETRON
     Indication: NAUSEA
  17. EMEND [Suspect]
     Active Substance: APREPITANT
     Indication: VOMITING
     Dosage: 80 MILLIGRAM, QD
     Route: 065
  18. DIMENHYDRINATE. [Suspect]
     Active Substance: DIMENHYDRINATE
     Indication: NAUSEA
  19. NABILONE [Suspect]
     Active Substance: NABILONE
     Indication: NAUSEA
     Route: 065
  20. PROCHLORPERAZINE. [Suspect]
     Active Substance: PROCHLORPERAZINE
     Indication: NAUSEA

REACTIONS (2)
  - Off label use [Unknown]
  - Treatment failure [Unknown]
